FAERS Safety Report 8968193 (Version 1)
Quarter: 2012Q4

REPORT INFORMATION
  Report Type: 
  Country: US (occurrence: US)
  Receive Date: 20121218
  Receipt Date: 20121218
  Transmission Date: 20130627
  Serious: Yes (Other)
  Sender: FDA-Public Use
  Company Number: US-PFIZER INC-2012317681

PATIENT
  Age: 40 Year
  Sex: Female
  Weight: 104 kg

DRUGS (2)
  1. LYRICA [Suspect]
     Indication: NERVE PAIN
     Dosage: 300 mg, 2x/day
     Dates: start: 2009
  2. CYMBALTA [Concomitant]
     Indication: NERVE PAIN
     Dosage: 60 mg, daily

REACTIONS (2)
  - Withdrawal syndrome [Not Recovered/Not Resolved]
  - Neuralgia [Not Recovered/Not Resolved]
